FAERS Safety Report 19744934 (Version 2)
Quarter: 2021Q3

REPORT INFORMATION
  Report Type: Spontaneous
  Country: NL (occurrence: NL)
  Receive Date: 20210825
  Receipt Date: 20210826
  Transmission Date: 20211014
  Serious: Yes (Death)
  Sender: FDA-Public Use
  Company Number: NL-PFIZER INC-202101067500

PATIENT
  Age: 80 Year
  Sex: Male

DRUGS (2)
  1. VYNDAQEL [Suspect]
     Active Substance: TAFAMIDIS MEGLUMINE
     Indication: HEREDITARY NEUROPATHIC AMYLOIDOSIS
     Dosage: 20 MG, 1X/DAY
     Dates: start: 2018
  2. PATISIRAN [Concomitant]
     Active Substance: PATISIRAN SODIUM
     Dosage: UNK
     Route: 042

REACTIONS (1)
  - Sepsis [Fatal]
